FAERS Safety Report 18691023 (Version 1)
Quarter: 2021Q1

REPORT INFORMATION
  Report Type: Report from Study
  Country: BR (occurrence: BR)
  Receive Date: 20210101
  Receipt Date: 20210101
  Transmission Date: 20210419
  Serious: Yes (Other)
  Sender: FDA-Public Use
  Company Number: PHHY2019BR102718

PATIENT
  Age: 66 Year
  Sex: Male

DRUGS (8)
  1. COSENTYX [Suspect]
     Active Substance: SECUKINUMAB
     Dosage: UNK
     Route: 065
     Dates: start: 20190328
  2. COSENTYX [Suspect]
     Active Substance: SECUKINUMAB
     Dosage: UNK
     Route: 065
     Dates: start: 20190227
  3. COSENTYX [Suspect]
     Active Substance: SECUKINUMAB
     Indication: PSORIASIS
     Dosage: 300 MG, UNK
     Route: 065
     Dates: start: 20190130
  4. COSENTYX [Suspect]
     Active Substance: SECUKINUMAB
     Dosage: UNK
     Route: 065
     Dates: start: 20190206
  5. COSENTYX [Suspect]
     Active Substance: SECUKINUMAB
     Dosage: UNK
     Route: 065
     Dates: start: 20190212
  6. COSENTYX [Suspect]
     Active Substance: SECUKINUMAB
     Dosage: UNK
     Route: 065
     Dates: start: 20190220
  7. COSENTYX [Suspect]
     Active Substance: SECUKINUMAB
     Dosage: UNK
     Route: 065
     Dates: start: 20190610
  8. COSENTYX [Suspect]
     Active Substance: SECUKINUMAB
     Dosage: UNK
     Route: 065

REACTIONS (24)
  - Chikungunya virus infection [Recovered/Resolved]
  - Pain [Recovered/Resolved]
  - Pain in extremity [Unknown]
  - Vomiting [Recovering/Resolving]
  - Weight increased [Unknown]
  - Pyrexia [Recovered/Resolved]
  - Loss of consciousness [Recovering/Resolving]
  - Pruritus [Not Recovered/Not Resolved]
  - Syncope [Recovering/Resolving]
  - Dyspnoea [Unknown]
  - Scratch [Not Recovered/Not Resolved]
  - Heart rate increased [Unknown]
  - Arthralgia [Unknown]
  - Hyperkeratosis [Not Recovered/Not Resolved]
  - Skin injury [Not Recovered/Not Resolved]
  - Foot deformity [Not Recovered/Not Resolved]
  - Head discomfort [Recovering/Resolving]
  - Myocardial infarction [Unknown]
  - Influenza [Unknown]
  - Hypersensitivity [Not Recovered/Not Resolved]
  - Malaise [Recovering/Resolving]
  - Gait disturbance [Not Recovered/Not Resolved]
  - Peripheral swelling [Not Recovered/Not Resolved]
  - Carotid arteriosclerosis [Not Recovered/Not Resolved]

NARRATIVE: CASE EVENT DATE: 20190420
